FAERS Safety Report 11194072 (Version 1)
Quarter: 2015Q2

REPORT INFORMATION
  Report Type: Spontaneous
  Country: DK (occurrence: DK)
  Receive Date: 20150616
  Receipt Date: 20150616
  Transmission Date: 20150821
  Serious: Yes (Hospitalization)
  Sender: FDA-Public Use
  Company Number: DK-ASTRAZENECA-2015SE57260

PATIENT
  Age: 21612 Day
  Sex: Male

DRUGS (5)
  1. METFORMINHYDROCHLORID [Concomitant]
     Indication: TYPE 2 DIABETES MELLITUS
  2. SIMVASTATIN. [Concomitant]
     Active Substance: SIMVASTATIN
     Indication: PROPHYLAXIS
  3. INSULIN [Concomitant]
     Active Substance: INSULIN NOS
  4. FORXIGA [Suspect]
     Active Substance: DAPAGLIFLOZIN
     Indication: TYPE 2 DIABETES MELLITUS
     Route: 048
     Dates: start: 20150422, end: 20150426
  5. BETOLVEX [Concomitant]
     Active Substance: CYANOCOBALAMIN
     Indication: VITAMIN B12 DEFICIENCY

REACTIONS (8)
  - Tenderness [Recovering/Resolving]
  - Blister [Recovering/Resolving]
  - Vasculitis [Recovering/Resolving]
  - Rash erythematous [Recovering/Resolving]
  - Neutrophil count increased [Unknown]
  - C-reactive protein increased [Unknown]
  - Peripheral swelling [Recovering/Resolving]
  - White blood cell count increased [Unknown]

NARRATIVE: CASE EVENT DATE: 20150425
